FAERS Safety Report 5367702-4 (Version None)
Quarter: 2007Q2

REPORT INFORMATION
  Report Type: 
  Country: None (occurrence: None)
  Receive Date: 20070622
  Receipt Date: 20070305
  Transmission Date: 20071010
  Serious: No
  Sender: FDA-Public Use
  Company Number: US-ASTRAZENECA-2007UW04183

PATIENT
  Age: 4 Year
  Sex: Male
  Weight: 34 kg

DRUGS (5)
  1. PULMICORT RESPULES [Suspect]
     Indication: ASTHMA
     Dosage: 0.5 MG/ 2 ML
     Route: 055
     Dates: start: 20070101
  2. NASONEX [Concomitant]
  3. ALBUTEROL [Concomitant]
  4. QUANADINE [Concomitant]
  5. MELATONIN [Concomitant]

REACTIONS (2)
  - RASH PRURITIC [None]
  - URTICARIA [None]
